FAERS Safety Report 22229378 (Version 1)
Quarter: 2023Q2

REPORT INFORMATION
  Report Type: Spontaneous
  Country: US (occurrence: US)
  Receive Date: 20230419
  Receipt Date: 20230419
  Transmission Date: 20230722
  Serious: No
  Sender: FDA-Public Use
  Company Number: US-ALLERGAN-2224261US

PATIENT
  Sex: Male
  Weight: 65.77 kg

DRUGS (3)
  1. RESTASIS [Suspect]
     Active Substance: CYCLOSPORINE
     Indication: Dry eye
     Dosage: 1 GTT, QD
     Route: 047
     Dates: start: 20220722
  2. DORZOLAMIDE\TIMOLOL [Concomitant]
     Active Substance: DORZOLAMIDE\TIMOLOL
     Indication: Glaucoma
     Dosage: 2 GTT, UNKNOWN
     Route: 047
  3. ROCKLATAN [Concomitant]
     Active Substance: LATANOPROST\NETARSUDIL MESYLATE
     Indication: Glaucoma
     Dosage: UNK
     Route: 047

REACTIONS (4)
  - Circumstance or information capable of leading to medication error [Unknown]
  - Visual impairment [Not Recovered/Not Resolved]
  - Eye injury [Not Recovered/Not Resolved]
  - Vision blurred [Not Recovered/Not Resolved]
